APPROVED DRUG PRODUCT: SYNERA
Active Ingredient: LIDOCAINE; TETRACAINE
Strength: 70MG;70MG
Dosage Form/Route: PATCH;TOPICAL
Application: N021623 | Product #001
Applicant: GALEN SPECIALTY PHARMA US LLC
Approved: Jun 23, 2005 | RLD: Yes | RS: No | Type: DISCN